FAERS Safety Report 5857966-2 (Version None)
Quarter: 2008Q3

REPORT INFORMATION
  Report Type: 
  Country: None (occurrence: None)
  Receive Date: 20080826
  Receipt Date: 20080818
  Transmission Date: 20090109
  Serious: Yes (Death)
  Sender: FDA-Public Use
  Company Number: US-GENENTECH-263727

PATIENT
  Sex: Male

DRUGS (3)
  1. AVASTIN [Suspect]
     Indication: NON-SMALL CELL LUNG CANCER
     Dosage: 280 MG, 1/WEEK
     Route: 042
     Dates: start: 20080310
  2. CARBOPLATIN [Concomitant]
     Indication: LUNG CANCER METASTATIC
     Dosage: 125 MG, UNK
     Route: 042
  3. TAXOL [Suspect]
     Indication: LUNG CANCER METASTATIC
     Dosage: 130 MG, UNK
     Route: 042

REACTIONS (1)
  - PNEUMONITIS [None]
